FAERS Safety Report 5200705-9 (Version None)
Quarter: 2006Q4

REPORT INFORMATION
  Report Type: 
  Country: None (occurrence: None)
  Receive Date: 20061016
  Receipt Date: 20050919
  Transmission Date: 20070319
  Serious: Yes (Other)
  Sender: FDA-Public Use
  Company Number: 2005129768

PATIENT
  Age: 68 Year
  Sex: Male
  Weight: 66.6788 kg

DRUGS (3)
  1. NEURONTIN [Suspect]
     Indication: COMPLEX REGIONAL PAIN SYNDROME
     Dosage: 900 MG (300 MG, 3 IN 1 D),
     Dates: start: 20050801
  2. NORVASC [Suspect]
     Indication: BLOOD PRESSURE
     Dates: start: 20050801
  3. XALATAN [Concomitant]

REACTIONS (3)
  - BLOOD PRESSURE INCREASED [None]
  - PAIN [None]
  - PANIC ATTACK [None]
